FAERS Safety Report 5697327-2 (Version None)
Quarter: 2008Q2

REPORT INFORMATION
  Report Type: 
  Country: None (occurrence: None)
  Receive Date: 20080408
  Receipt Date: 20080404
  Transmission Date: 20081010
  Serious: Yes (Hospitalization)
  Sender: FDA-Public Use
  Company Number: DE-BAYER-200815839GPV

PATIENT
  Age: 83 Year
  Sex: Female
  Weight: 62 kg

DRUGS (2)
  1. NEXAVAR [Suspect]
     Indication: MALIGNANT MELANOMA
     Dosage: AS USED: 400 MG
     Route: 048
     Dates: start: 20080317, end: 20080324
  2. PEGYLATED INTERFERON ALPHA-2B (PEGINTRON) [Suspect]
     Indication: MALIGNANT MELANOMA
     Route: 058
     Dates: start: 20080317, end: 20080325

REACTIONS (2)
  - GENERAL PHYSICAL HEALTH DETERIORATION [None]
  - PALMAR-PLANTAR ERYTHRODYSAESTHESIA SYNDROME [None]
